FAERS Safety Report 4532698-1 (Version None)
Quarter: 2004Q4

REPORT INFORMATION
  Report Type: 
  Country: None (occurrence: None)
  Receive Date: 20041220
  Receipt Date: 20041220
  Transmission Date: 20050328
  Serious: No
  Sender: FDA-Public Use
  Company Number: None

PATIENT
  Age: 60 Year
  Sex: Male
  Weight: 85.7298 kg

DRUGS (7)
  1. VIREAD [Suspect]
     Dosage: 300 MG PO QD
     Route: 048
     Dates: start: 20020930, end: 20040807
  2. 3TC [Concomitant]
  3. TDF [Concomitant]
  4. WB SR [Concomitant]
  5. TRICOR [Concomitant]
  6. ASPIRIN [Concomitant]
  7. REYATAZ [Concomitant]

REACTIONS (1)
  - BLOOD CREATININE INCREASED [None]
